FAERS Safety Report 11777411 (Version 1)
Quarter: 2015Q4

REPORT INFORMATION
  Report Type: Spontaneous
  Country: US (occurrence: None)
  Receive Date: 20151124
  Receipt Date: 20151124
  Transmission Date: 20160304
  Serious: No
  Sender: FDA-Public Use
  Company Number: None

PATIENT
  Age: 30 Year
  Sex: Female
  Weight: 102 kg

DRUGS (6)
  1. LEVOTHYROXINE. [Concomitant]
     Active Substance: LEVOTHYROXINE
  2. FOLIC ACID. [Concomitant]
     Active Substance: FOLIC ACID
  3. VITAMIN D [Concomitant]
     Active Substance: CHOLECALCIFEROL
  4. SPIRONOLACTONE. [Concomitant]
     Active Substance: SPIRONOLACTONE
  5. DOXYCYCLINE HYCLATE. [Suspect]
     Active Substance: DOXYCYCLINE HYCLATE
     Indication: MEIBOMIAN GLAND DYSFUNCTION
     Route: 048
     Dates: start: 20151106, end: 20151119
  6. LORATIDINE [Concomitant]
     Active Substance: LORATADINE

REACTIONS (4)
  - Oesophageal pain [None]
  - Oesophagitis [None]
  - Chest pain [None]
  - Feeling abnormal [None]

NARRATIVE: CASE EVENT DATE: 20151120
